FAERS Safety Report 9551087 (Version 2)
Quarter: 2013Q4

REPORT INFORMATION
  Report Type: Report from Study
  Country: AR (occurrence: AR)
  Receive Date: 20130925
  Receipt Date: 20131016
  Transmission Date: 20140711
  Serious: Yes (Other)
  Sender: FDA-Public Use
  Company Number: AR-ROCHE-1279579

PATIENT
  Sex: Female

DRUGS (3)
  1. LUCENTIS [Suspect]
     Indication: MACULOPATHY
     Dosage: MAR/2011
     Route: 050
     Dates: start: 201101
  2. RAMIPRIL [Concomitant]
     Route: 065
     Dates: end: 201101
  3. RAMIPRIL [Concomitant]
     Route: 065
     Dates: start: 201101

REACTIONS (4)
  - Blindness [Unknown]
  - Visual acuity reduced [Unknown]
  - Hearing impaired [Not Recovered/Not Resolved]
  - Eye irritation [Not Recovered/Not Resolved]
